FAERS Safety Report 20626954 (Version 1)
Quarter: 2022Q1

REPORT INFORMATION
  Report Type: Spontaneous
  Country: US (occurrence: None)
  Receive Date: 20220322
  Receipt Date: 20220322
  Transmission Date: 20220424
  Serious: Yes (Disabling)
  Sender: FDA-Public Use
  Company Number: None

PATIENT
  Age: 68 Year
  Sex: Female
  Weight: 50.85 kg

DRUGS (1)
  1. TYMLOS [Suspect]
     Active Substance: ABALOPARATIDE
     Indication: Osteoporosis
     Dosage: OTHER QUANTITY : 1 INJECTION(S);?FREQUENCY : DAILY;?
     Dates: start: 20200901, end: 20211121

REACTIONS (3)
  - Musculoskeletal stiffness [None]
  - Bone pain [None]
  - Muscle spasms [None]

NARRATIVE: CASE EVENT DATE: 20201001
